FAERS Safety Report 21520862 (Version 6)
Quarter: 2023Q2

REPORT INFORMATION
  Report Type: Report from Study
  Country: US (occurrence: US)
  Receive Date: 20221028
  Receipt Date: 20230609
  Transmission Date: 20230721
  Serious: No
  Sender: FDA-Public Use
  Company Number: US-NOVARTISTESTPH-NVSC2022US241896

PATIENT
  Sex: Female

DRUGS (2)
  1. COSENTYX [Suspect]
     Active Substance: SECUKINUMAB
     Indication: Psoriasis
     Dosage: 300 MG, QMO, (LIQUID)
     Route: 058
  2. COSENTYX [Suspect]
     Active Substance: SECUKINUMAB
     Indication: Psoriatic arthropathy

REACTIONS (13)
  - Nail infection [Unknown]
  - Fatigue [Unknown]
  - Pyrexia [Recovered/Resolved]
  - Headache [Unknown]
  - Psoriasis [Unknown]
  - Onychalgia [Unknown]
  - Nail discolouration [Unknown]
  - Oropharyngeal pain [Unknown]
  - Pain in extremity [Unknown]
  - Rash [Unknown]
  - Scar [Unknown]
  - Nodule [Unknown]
  - Rash macular [Recovered/Resolved]
